FAERS Safety Report 9219193 (Version 3)
Quarter: 2013Q3

REPORT INFORMATION
  Report Type: Spontaneous
  Country: US (occurrence: US)
  Receive Date: 20130409
  Receipt Date: 20130820
  Transmission Date: 20140515
  Serious: Yes (Hospitalization)
  Sender: FDA-Public Use
  Company Number: US-BAYER-2013-042715

PATIENT
  Age: 36 Year
  Sex: Female
  Weight: 56.69 kg

DRUGS (10)
  1. YASMIN [Suspect]
     Indication: CONTRACEPTION
     Dosage: UNK
     Dates: start: 20050518, end: 20120905
  2. OCELLA [Suspect]
     Indication: CONTRACEPTION
     Dosage: UNK
     Dates: start: 20050518, end: 20120905
  3. IMITREX [Concomitant]
     Dosage: UNK
     Dates: start: 20061112
  4. MAXALT [Concomitant]
     Dosage: UNK
     Dates: start: 20061112
  5. LEXAPRO [Concomitant]
     Indication: MENTAL DISORDER
     Dosage: UNK
     Dates: start: 20111006, end: 20120910
  6. NEXIUM [Concomitant]
     Indication: DYSPEPSIA
     Dosage: UNK
     Dates: start: 201006, end: 201208
  7. ESCITALOPRAM [Concomitant]
     Dosage: 10 MG, UNK
  8. LORAZEPAM [Concomitant]
     Dosage: 0.5 MG, UNK
  9. ETODOLAC [Concomitant]
     Dosage: 300 MG, UNK
  10. FLUCONAZOLE [Concomitant]
     Dosage: 150 MG, UNK

REACTIONS (4)
  - Pulmonary embolism [Recovered/Resolved]
  - Deep vein thrombosis [Recovered/Resolved]
  - Injury [Recovered/Resolved]
  - Emotional distress [None]
